FAERS Safety Report 16567855 (Version 1)
Quarter: 2019Q3

REPORT INFORMATION
  Report Type: Spontaneous
  Country: FR (occurrence: FR)
  Receive Date: 20190712
  Receipt Date: 20190712
  Transmission Date: 20191004
  Serious: Yes (Other)
  Sender: FDA-Public Use
  Company Number: PHHY2019FR159965

PATIENT
  Age: 79 Year
  Sex: Female
  Weight: 69 kg

DRUGS (3)
  1. PERINDOPRIL [Suspect]
     Active Substance: PERINDOPRIL
     Indication: HYPERTENSION
     Dosage: 5 MG, QD
     Route: 048
  2. AMLODIPINE [Suspect]
     Active Substance: AMLODIPINE BESYLATE
     Indication: HYPERTENSION
     Dosage: 10 MG, QD
     Route: 048
     Dates: end: 20180702
  3. ESIDREX [Suspect]
     Active Substance: HYDROCHLOROTHIAZIDE
     Indication: HYPERTENSION
     Dosage: 12.5 MG, QD
     Route: 048
     Dates: end: 20180615

REACTIONS (2)
  - Orthostatic hypotension [Recovered/Resolved]
  - Fall [Recovered/Resolved]

NARRATIVE: CASE EVENT DATE: 201806
